FAERS Safety Report 23371838 (Version 2)
Quarter: 2024Q1

REPORT INFORMATION
  Report Type: Report from Study
  Country: IT (occurrence: IT)
  Receive Date: 20240105
  Receipt Date: 20240202
  Transmission Date: 20240410
  Serious: Yes (Hospitalization)
  Sender: FDA-Public Use
  Company Number: IT-ROCHE-3458160

PATIENT
  Age: 56 Year
  Sex: Male
  Weight: 71.5 kg

DRUGS (19)
  1. DOXORUBICIN HYDROCHLORIDE [Suspect]
     Active Substance: DOXORUBICIN HYDROCHLORIDE
     Indication: Diffuse large B-cell lymphoma
     Dosage: DATE OF MOST RECENT DOSE OF STUDY DRUG PRIOR TO SAE: 07/NOV/2023
     Route: 042
     Dates: start: 20231107
  2. RITUXIMAB [Suspect]
     Active Substance: RITUXIMAB
     Indication: Diffuse large B-cell lymphoma
     Dosage: DATE OF MOST RECENT DOSE OF STUDY DRUG PRIOR TO SAE: 07/NOV/2023
     Route: 042
     Dates: start: 20231107
  3. POLATUZUMAB VEDOTIN [Suspect]
     Active Substance: POLATUZUMAB VEDOTIN
     Indication: Diffuse large B-cell lymphoma
     Dosage: DATE OF MOST RECENT DOSE OF STUDY DRUG PRIOR TO SAE: 07/NOV/2023
     Route: 042
     Dates: start: 20231107
  4. CYCLOPHOSPHAMIDE [Suspect]
     Active Substance: CYCLOPHOSPHAMIDE
     Indication: Diffuse large B-cell lymphoma
     Dosage: DATE OF MOST RECENT DOSE OF STUDY DRUG PRIOR TO SAE: 07/NOV/2023
     Route: 042
     Dates: start: 20231107
  5. METHYLPREDNISOLONE SODIUM SUCCINATE [Concomitant]
     Active Substance: METHYLPREDNISOLONE SODIUM SUCCINATE
     Indication: Diffuse large B-cell lymphoma
     Dosage: DATE OF MOST RECENT DOSE OF STUDY DRUG PRIOR TO SAE: 11/NOV/2023
     Route: 042
     Dates: start: 20231107
  6. PREDNISONE [Concomitant]
     Active Substance: PREDNISONE
     Indication: Diffuse large B-cell lymphoma
     Dosage: DATE OF MOST RECENT DOSE OF STUDY DRUG PRIOR TO SAE: 11/NOV/2023
     Route: 042
     Dates: start: 20231107
  7. PREDNISOLONE [Concomitant]
     Active Substance: PREDNISOLONE
     Indication: Diffuse large B-cell lymphoma
     Dosage: DATE OF MOST RECENT DOSE OF STUDY DRUG PRIOR TO SAE: 11/NOV/2023
     Route: 042
     Dates: start: 20231107
  8. LASIX [Concomitant]
     Active Substance: FUROSEMIDE
     Dates: start: 20231031, end: 20231117
  9. MEPRAL [OMEPRAZOLE] [Concomitant]
     Dates: start: 20231109, end: 20231121
  10. CETIRIZINE [Concomitant]
     Active Substance: CETIRIZINE HYDROCHLORIDE
     Dates: start: 20231107, end: 20231107
  11. ENOXAPARIN SODIUM [Concomitant]
     Active Substance: ENOXAPARIN SODIUM
     Dates: start: 20231031
  12. HUMAN RED BLOOD CELL [Concomitant]
     Active Substance: HUMAN RED BLOOD CELL
     Indication: Anaemia
  13. METHYLPREDNISOLONE [Concomitant]
     Active Substance: METHYLPREDNISOLONE
     Dates: start: 20231102, end: 20231105
  14. METHYLPREDNISOLONE [Concomitant]
     Active Substance: METHYLPREDNISOLONE
     Dates: start: 20231031, end: 20231101
  15. FASTURTEC [Concomitant]
     Active Substance: RASBURICASE
     Dates: start: 20231031, end: 20231112
  16. PANTOPRAZOLE [Concomitant]
     Active Substance: PANTOPRAZOLE
     Dates: start: 20231107, end: 20231107
  17. BISOPROLOL [Concomitant]
     Active Substance: BISOPROLOL\BISOPROLOL FUMARATE
     Indication: Sinus tachycardia
     Dosage: 1.25 MG, 1X/DAY
  18. LEVOFLOXACIN [Concomitant]
     Active Substance: LEVOFLOXACIN
     Dosage: 500 MG, 1X/DAY
     Dates: start: 20231114, end: 20231119
  19. PEGFILGRASTIM [Concomitant]
     Active Substance: PEGFILGRASTIM
     Dates: start: 20231106, end: 20231106

REACTIONS (1)
  - Febrile neutropenia [Recovered/Resolved]

NARRATIVE: CASE EVENT DATE: 20231114
